FAERS Safety Report 24809154 (Version 1)
Quarter: 2025Q1

REPORT INFORMATION
  Report Type: Spontaneous
  Country: DE (occurrence: DE)
  Receive Date: 20250106
  Receipt Date: 20250106
  Transmission Date: 20250409
  Serious: Yes (Other)
  Sender: VELOXIS PHARMACEUTICALS
  Company Number: DE-VELOXIS PHARMACEUTICALS, INC.-2024-VEL-00667

PATIENT
  Sex: Male

DRUGS (1)
  1. ENVARSUS XR [Suspect]
     Active Substance: TACROLIMUS
     Indication: Product used for unknown indication
     Route: 048

REACTIONS (2)
  - Cataract [Unknown]
  - Eye disorder [Unknown]
